FAERS Safety Report 8940207 (Version 2)
Quarter: 2012Q4

REPORT INFORMATION
  Report Type: 
  Country: US (occurrence: US)
  Receive Date: 20121121
  Receipt Date: 20121212
  Transmission Date: 20130627
  Serious: Yes (Death)
  Sender: FDA-Public Use
  Company Number: US-ASTELLAS-1113164

PATIENT
  Sex: Male

DRUGS (10)
  1. AVASTIN [Suspect]
     Indication: MALIGNANT RESPIRATORY TRACT NEOPLASM
     Route: 065
     Dates: start: 20050415, end: 20051110
  2. TARCEVA [Suspect]
     Indication: PRODUCT USED FOR UNKNOWN INDICATION
     Route: 065
     Dates: start: 20050415, end: 20051110
  3. TAXOL [Concomitant]
  4. CARBOPLATINUM [Concomitant]
  5. IRESSA [Concomitant]
  6. TEMOZOLOMIDE [Concomitant]
  7. CORTISONE [Concomitant]
  8. WELLBUTRIN [Concomitant]
  9. NEURONTIN [Concomitant]
  10. GLUCOPHAGE [Concomitant]

REACTIONS (3)
  - Death [Fatal]
  - Rash [Unknown]
  - Disease progression [Unknown]
